FAERS Safety Report 12872450 (Version 2)
Quarter: 2016Q4

REPORT INFORMATION
  Report Type: Spontaneous
  Country: US (occurrence: US)
  Receive Date: 20161021
  Receipt Date: 20161028
  Transmission Date: 20170207
  Serious: No
  Sender: FDA-Public Use
  Company Number: US-BAYER-2016-203115

PATIENT

DRUGS (1)
  1. CLARITIN [Suspect]
     Active Substance: LORATADINE
     Dosage: UNK
     Route: 047

REACTIONS (4)
  - Eye irritation [Unknown]
  - Vision blurred [Unknown]
  - Product use issue [None]
  - Wrong technique in product usage process [Unknown]
